FAERS Safety Report 8050263-9 (Version None)
Quarter: 2012Q1

REPORT INFORMATION
  Report Type: 
  Country: None (occurrence: None)
  Receive Date: 20120117
  Receipt Date: 20120111
  Transmission Date: 20120608
  Serious: Yes (Hospitalization)
  Sender: FDA-Public Use
  Company Number: JP-PFIZER INC-2012007796

PATIENT
  Age: 45 Year
  Sex: Female

DRUGS (1)
  1. ARMODAFINIL [Suspect]
     Indication: FUNGAL INFECTION
     Dosage: UNK

REACTIONS (1)
  - ASPERGILLOSIS [None]
